FAERS Safety Report 10175189 (Version 1)
Quarter: 2014Q2

REPORT INFORMATION
  Report Type: Spontaneous
  Country: US (occurrence: US)
  Receive Date: 20140515
  Receipt Date: 20140515
  Transmission Date: 20141212
  Serious: No
  Sender: FDA-Public Use
  Company Number: US-VIVUS-2014V1000059

PATIENT
  Age: 81 Year
  Sex: Female
  Weight: 79 kg

DRUGS (11)
  1. QSYMIA 7.5MG/46MG [Suspect]
     Indication: WEIGHT DECREASED
     Route: 048
     Dates: start: 201311
  2. QSYMIA 3.75MG/23MG [Suspect]
     Indication: WEIGHT DECREASED
     Route: 048
     Dates: start: 20131024, end: 201311
  3. LEVOTHYROXINE [Concomitant]
     Indication: THYROID DISORDER
     Dosage: STARTED SEVERAL YEARS AGO
     Route: 048
  4. METOPROLOL [Concomitant]
     Indication: PRODUCT USED FOR UNKNOWN INDICATION
     Dosage: STARTED ONE YEAR AGO
     Route: 048
     Dates: start: 2013
  5. RAMIPRIL [Concomitant]
     Indication: HYPERTENSION
     Dosage: STARTED FEW YEARS AGO
     Route: 048
  6. METFORMIN [Concomitant]
     Indication: BLOOD GLUCOSE ABNORMAL
     Dosage: STARTED ONE YEAR AGO
     Route: 048
     Dates: start: 2013
  7. ZOCOR [Concomitant]
     Indication: BLOOD CHOLESTEROL INCREASED
     Route: 048
     Dates: start: 201303
  8. ASPIRIN [Concomitant]
     Indication: PRODUCT USED FOR UNKNOWN INDICATION
     Dosage: STARTED FEW YEARS AGO
     Route: 048
  9. CALCIUM [Concomitant]
     Indication: PRODUCT USED FOR UNKNOWN INDICATION
     Dosage: STARTED FEW YEARS AGO
     Route: 048
  10. IRON [Concomitant]
     Indication: PRODUCT USED FOR UNKNOWN INDICATION
     Dosage: STARTED FEW YEARS AGO
     Route: 048
  11. MULTI-VITAMIN [Concomitant]
     Indication: PRODUCT USED FOR UNKNOWN INDICATION
     Dosage: STARTED FEW YEARS AGO
     Route: 048

REACTIONS (4)
  - Dysphonia [Not Recovered/Not Resolved]
  - Rhinorrhoea [Not Recovered/Not Resolved]
  - Oropharyngeal pain [Not Recovered/Not Resolved]
  - Nasopharyngitis [Not Recovered/Not Resolved]
